FAERS Safety Report 9003425 (Version 1)
Quarter: 2013Q1

REPORT INFORMATION
  Report Type: Spontaneous
  Country: FR (occurrence: FR)
  Receive Date: 20130108
  Receipt Date: 20130108
  Transmission Date: 20140127
  Serious: Yes (Hospitalization)
  Sender: FDA-Public Use
  Company Number: FR-GLAXOSMITHKLINE-B0855928A

PATIENT
  Age: 45 Year
  Sex: Female

DRUGS (4)
  1. ZOPHREN [Suspect]
     Indication: PREMEDICATION
     Dosage: 8MG CYCLIC
     Route: 042
     Dates: start: 20120217, end: 20120217
  2. CISPLATIN [Suspect]
     Indication: SQUAMOUS CELL CARCINOMA
     Dosage: 58MG CYCLIC
     Route: 042
     Dates: start: 20120217, end: 20120217
  3. METHYLPREDNISOLONE [Suspect]
     Indication: PREMEDICATION
     Dosage: 60MG CYCLIC
     Route: 042
     Dates: start: 20120217, end: 20120217
  4. EMEND [Suspect]
     Indication: PREMEDICATION
     Route: 048
     Dates: start: 20120217, end: 20120219

REACTIONS (1)
  - Pancytopenia [Recovered/Resolved]
